FAERS Safety Report 15523721 (Version 1)
Quarter: 2018Q4

REPORT INFORMATION
  Report Type: Spontaneous
  Country: US (occurrence: US)
  Receive Date: 20181019
  Receipt Date: 20181019
  Transmission Date: 20190205
  Serious: Yes (Hospitalization, Other)
  Sender: FDA-Public Use
  Company Number: US-009507513-1810USA008644

PATIENT
  Age: 32 Year
  Sex: Female
  Weight: 56.19 kg

DRUGS (8)
  1. MAXALT [Suspect]
     Active Substance: RIZATRIPTAN BENZOATE
     Indication: MIGRAINE
     Dosage: 10 MG, AS REQUIRED
     Route: 048
     Dates: start: 20170128, end: 201711
  2. VICKS NYQUIL SINUS [Concomitant]
     Active Substance: ACETAMINOPHEN\DOXYLAMINE SUCCINATE\PHENYLEPHRINE HYDROCHLORIDE
     Indication: COUGH
  3. VICKS DAYQUIL (OLD FORMULA) [Concomitant]
     Indication: NASOPHARYNGITIS
     Dosage: EVERY 6 HOURS PRN
     Route: 048
     Dates: start: 20170913, end: 20170915
  4. BENADRYL [Concomitant]
     Active Substance: DIPHENHYDRAMINE HYDROCHLORIDE
     Indication: MIGRAINE
     Dosage: EVERY 6 HOURS PRN
     Route: 048
     Dates: start: 20171010, end: 20171017
  5. ADVIL [Concomitant]
     Active Substance: IBUPROFEN
     Indication: MIGRAINE
     Dosage: UNK
     Route: 048
     Dates: start: 1996
  6. VICKS NYQUIL SINUS [Concomitant]
     Active Substance: ACETAMINOPHEN\DOXYLAMINE SUCCINATE\PHENYLEPHRINE HYDROCHLORIDE
     Indication: NASOPHARYNGITIS
     Dosage: EVERY 6 HOURS, PRN
     Route: 048
     Dates: start: 20170913, end: 20170915
  7. FLEXERIL [Suspect]
     Active Substance: CYCLOBENZAPRINE HYDROCHLORIDE
     Dosage: 10 MG, PRN
     Route: 048
     Dates: start: 20170927, end: 20171007
  8. VICKS DAYQUIL (OLD FORMULA) [Concomitant]
     Indication: COUGH

REACTIONS (5)
  - Caesarean section [Unknown]
  - Maternal exposure before pregnancy [Recovered/Resolved]
  - Vaginal haemorrhage [Unknown]
  - Oedema peripheral [Unknown]
  - Premature separation of placenta [Recovered/Resolved]

NARRATIVE: CASE EVENT DATE: 201808
